FAERS Safety Report 20080825 (Version 1)
Quarter: 2021Q4

REPORT INFORMATION
  Report Type: Spontaneous
  Country: US (occurrence: US)
  Receive Date: 20211117
  Receipt Date: 20211117
  Transmission Date: 20220303
  Serious: Yes (Hospitalization)
  Sender: FDA-Public Use
  Company Number: US-MYLANLABS-2021M1084395

PATIENT
  Age: 74 Year
  Sex: Female

DRUGS (1)
  1. ASCORBIC ACID [Suspect]
     Active Substance: ASCORBIC ACID
     Indication: Vitamin supplementation
     Dosage: 1000 MILLIGRAM, QD
     Route: 065

REACTIONS (2)
  - Crystal nephropathy [Not Recovered/Not Resolved]
  - Acute kidney injury [Not Recovered/Not Resolved]
